FAERS Safety Report 6975731-X (Version None)
Quarter: 2010Q3

REPORT INFORMATION
  Report Type: 
  Country: None (occurrence: None)
  Receive Date: 20100910
  Receipt Date: 20090501
  Transmission Date: 20110219
  Serious: No
  Sender: FDA-Public Use
  Company Number: US-WYE-H08734309

PATIENT
  Sex: Female
  Weight: 104.87 kg

DRUGS (5)
  1. PRISTIQ [Suspect]
     Indication: DEPRESSION
     Route: 048
     Dates: start: 20090325
  2. XANAX [Concomitant]
  3. HYDROCODONE [Concomitant]
  4. LIPITOR [Concomitant]
  5. ATENOLOL [Concomitant]

REACTIONS (6)
  - CONDITION AGGRAVATED [None]
  - DYSPEPSIA [None]
  - FATIGUE [None]
  - FEELING JITTERY [None]
  - NAUSEA [None]
  - PANIC ATTACK [None]
